FAERS Safety Report 21587302 (Version 1)
Quarter: 2022Q4

REPORT INFORMATION
  Report Type: Other
  Country: US (occurrence: None)
  Receive Date: 20221114
  Receipt Date: 20221114
  Transmission Date: 20230113
  Serious: Yes (Hospitalization, Other)
  Sender: FDA-Public Use
  Company Number: US-ROCHE-3214865

PATIENT
  Sex: Male

DRUGS (18)
  1. OCREVUS [Suspect]
     Active Substance: OCRELIZUMAB
     Indication: Multiple sclerosis
     Dosage: NO
     Route: 065
  2. TYSABRI [Concomitant]
     Active Substance: NATALIZUMAB
  3. ALBUTEROL [Concomitant]
     Active Substance: ALBUTEROL
  4. ZYLOPRIM [Concomitant]
     Active Substance: ALLOPURINOL
  5. AMPYRA [Concomitant]
     Active Substance: DALFAMPRIDINE
  6. LIORESAL [Concomitant]
     Active Substance: BACLOFEN
  7. TEMOVATE [Concomitant]
     Active Substance: CLOBETASOL PROPIONATE
  8. KLONOPIN [Concomitant]
     Active Substance: CLONAZEPAM
     Route: 048
  9. VALIUM [Concomitant]
     Active Substance: DIAZEPAM
     Route: 048
  10. CYMBALTA [Concomitant]
     Active Substance: DULOXETINE HYDROCHLORIDE
  11. NEURONTIN [Concomitant]
     Active Substance: GABAPENTIN
  12. MICROZIDE (UNITED STATES) [Concomitant]
  13. NIZORAL [Concomitant]
     Active Substance: KETOCONAZOLE
  14. PRINIVIL [Concomitant]
     Active Substance: LISINOPRIL
  15. RITALIN [Concomitant]
     Active Substance: METHYLPHENIDATE HYDROCHLORIDE
  16. TRILEPTAL [Concomitant]
     Active Substance: OXCARBAZEPINE
  17. REVATIO [Concomitant]
     Active Substance: SILDENAFIL CITRATE
  18. AMBIEN [Concomitant]
     Active Substance: ZOLPIDEM TARTRATE

REACTIONS (2)
  - COVID-19 pneumonia [Unknown]
  - Urinary tract infection [Unknown]
